FAERS Safety Report 9543516 (Version 1)
Quarter: 2013Q2

REPORT INFORMATION
  Report Type: Spontaneous
  Country: US (occurrence: None)
  Receive Date: 20130524
  Receipt Date: 20130524
  Transmission Date: 20140414
  Serious: No
  Sender: FDA-Public Use
  Company Number: PHEH2013US001650

PATIENT
  Age: 51 Year
  Sex: Female
  Weight: 61.2 kg

DRUGS (6)
  1. GILENYA [Suspect]
     Indication: MULTIPLE SCLEROSIS
     Route: 048
     Dates: start: 20110201
  2. CLONAZEPAM (CLONAZEPAM) (CLONAZEPAM) [Concomitant]
  3. OXYCODONE (OXYCODONE) [Concomitant]
  4. STOOL SOFTENER (DOCUSATE SODIUM) [Concomitant]
  5. LAXATIVE (SENNOSIDE A+B) [Concomitant]
  6. ASA (ACETYLSALICYLIC ACID) [Concomitant]

REACTIONS (7)
  - Tremor [None]
  - Fatigue [None]
  - Gait disturbance [None]
  - Nausea [None]
  - Pain [None]
  - Headache [None]
  - Dizziness [None]
